FAERS Safety Report 7319833-7 (Version None)
Quarter: 2011Q1

REPORT INFORMATION
  Report Type: 
  Country: None (occurrence: None)
  Receive Date: 20110228
  Receipt Date: 20101013
  Transmission Date: 20110831
  Serious: No
  Sender: FDA-Public Use
  Company Number: A0886903A

PATIENT
  Sex: Female

DRUGS (1)
  1. LAMOTRIGINE [Suspect]
     Indication: EPILEPSY
     Route: 065
     Dates: start: 20090101

REACTIONS (3)
  - ADVERSE EVENT [None]
  - TREATMENT NONCOMPLIANCE [None]
  - MEMORY IMPAIRMENT [None]
